FAERS Safety Report 18577947 (Version 2)
Quarter: 2020Q4

REPORT INFORMATION
  Report Type: Spontaneous
  Country: AU (occurrence: AU)
  Receive Date: 20201204
  Receipt Date: 20201217
  Transmission Date: 20210114
  Serious: Yes (Other)
  Sender: FDA-Public Use
  Company Number: AU-GE HEALTHCARE LIFE SCIENCES-2020CSU006120

PATIENT

DRUGS (4)
  1. OMNIPAQUE [Suspect]
     Active Substance: IOHEXOL
     Indication: VISUAL IMPAIRMENT
  2. OMNIPAQUE [Suspect]
     Active Substance: IOHEXOL
     Indication: CEREBROVASCULAR DISORDER
  3. OMNIPAQUE [Suspect]
     Active Substance: IOHEXOL
     Indication: VENOGRAM
  4. OMNIPAQUE [Suspect]
     Active Substance: IOHEXOL
     Indication: ANGIOGRAM
     Dosage: 75 ML, SINGLE
     Route: 042
     Dates: start: 20201130, end: 20201130

REACTIONS (1)
  - Contrast media allergy [Recovered/Resolved]

NARRATIVE: CASE EVENT DATE: 20201130
